FAERS Safety Report 8908396 (Version 2)
Quarter: 2012Q4

REPORT INFORMATION
  Report Type: 
  Country: US (occurrence: US)
  Receive Date: 20121114
  Receipt Date: 20121127
  Transmission Date: 20130627
  Serious: Yes (Other)
  Sender: FDA-Public Use
  Company Number: US-PFIZER INC-2012284145

PATIENT
  Age: 43 Year
  Sex: Female
  Weight: 104.31 kg

DRUGS (10)
  1. LYRICA [Suspect]
     Indication: FIBROMYALGIA
     Dosage: 350 mg, 2x/day
     Route: 048
     Dates: start: 2011
  2. LYRICA [Suspect]
     Dosage: 225 mg, daily
     Dates: start: 20111201
  3. LYRICA [Suspect]
     Dosage: 500 mg, daily
  4. LYRICA [Suspect]
     Dosage: 225 mg, daily
  5. LASIX [Suspect]
     Indication: EDEMA PERIPHERAL
     Dosage: 20 mg, daily
  6. LASIX [Suspect]
     Indication: SWELLING OF KNEES
  7. DYAZIDE [Concomitant]
     Indication: BLOOD PRESSURE HIGH
     Dosage: 37.5 mg, 1x/day
  8. SIMVASTATIN [Concomitant]
     Indication: BLOOD CHOLESTEROL ABNORMAL
     Dosage: 20 mg, daily
  9. MUCINEX [Concomitant]
     Indication: SINUS DISORDER NOS
     Dosage: UNK, daily
  10. SULFASALAZINE [Concomitant]
     Indication: RHEUMATOID ARTHRITIS
     Dosage: 400 mg, daily

REACTIONS (4)
  - Oedema peripheral [Not Recovered/Not Resolved]
  - Joint swelling [Not Recovered/Not Resolved]
  - Expired drug administered [Unknown]
  - Drug ineffective [Unknown]
